FAERS Safety Report 11182579 (Version 2)
Quarter: 2015Q3

REPORT INFORMATION
  Report Type: Spontaneous
  Country: US (occurrence: US)
  Receive Date: 20150611
  Receipt Date: 20150914
  Transmission Date: 20151125
  Serious: No
  Sender: FDA-Public Use
  Company Number: US-ASTELLAS-2015US017928

PATIENT
  Age: 72 Year
  Sex: Male

DRUGS (1)
  1. XTANDI [Suspect]
     Active Substance: ENZALUTAMIDE
     Indication: PROSTATE CANCER
     Route: 048
     Dates: start: 20150511, end: 20150629

REACTIONS (8)
  - Headache [Unknown]
  - Blood sodium decreased [Recovering/Resolving]
  - Fatigue [Unknown]
  - Hyperhidrosis [Unknown]
  - Muscular weakness [Unknown]
  - Photopsia [Unknown]
  - Asthenia [Unknown]
  - Pain in extremity [Unknown]

NARRATIVE: CASE EVENT DATE: 20150521
